FAERS Safety Report 8086624 (Version 3)
Quarter: 2014Q2

REPORT INFORMATION
  Report Type: Spontaneous
  Country: US (occurrence: US)
  Receive Date: 20110811
  Receipt Date: 20140606
  Transmission Date: 20141212
  Serious: Yes (Death, Hospitalization)
  Sender: FDA-Public Use
  Company Number: US-GLAXOSMITHKLINE-A0873490A

PATIENT
  Age: 75 Year
  Sex: Male

DRUGS (1)
  1. ROSIGLITAZONE MALEATE [Suspect]
     Indication: DIABETES MELLITUS
     Dosage: 8MG PER DAY
     Route: 048
     Dates: start: 200501, end: 200702

REACTIONS (3)
  - Cardio-respiratory arrest [Fatal]
  - Myocardial infarction [Unknown]
  - Cardiac failure congestive [Unknown]
